FAERS Safety Report 26015482 (Version 2)
Quarter: 2025Q4

REPORT INFORMATION
  Report Type: Spontaneous
  Country: US (occurrence: US)
  Receive Date: 20251109
  Receipt Date: 20251121
  Transmission Date: 20260118
  Serious: No
  Sender: Kenvue
  Company Number: US-KENVUE-20251013450

PATIENT
  Sex: Female

DRUGS (4)
  1. TYLENOL [Suspect]
     Active Substance: ACETAMINOPHEN
     Indication: Headache
     Dosage: AS NEEDED
     Route: 065
  2. UPTRAVI [Concomitant]
     Active Substance: SELEXIPAG
     Indication: Pulmonary arterial hypertension
     Dosage: 400 MICROGRAM, TWICE A DAY
     Dates: start: 202506
  3. UPTRAVI [Concomitant]
     Active Substance: SELEXIPAG
     Dosage: 800 MICROGRAM, TWICE A DAY
     Dates: start: 202506
  4. TRAMADOL [Concomitant]
     Active Substance: TRAMADOL
     Indication: Headache
     Route: 065

REACTIONS (1)
  - Drug ineffective [Unknown]

NARRATIVE: CASE EVENT DATE: 20250101
